FAERS Safety Report 5060681-9 (Version None)
Quarter: 2006Q2

REPORT INFORMATION
  Report Type: 
  Country: None (occurrence: None)
  Receive Date: 20060630
  Receipt Date: 20060419
  Transmission Date: 20061013
  Serious: Yes (Hospitalization)
  Sender: FDA-Public Use
  Company Number: US200604003313

PATIENT
  Age: 66 Year
  Sex: Female

DRUGS (2)
  1. HUMALOG MIX 75/25 [Suspect]
     Dates: start: 20010101
  2. HUMAN INSULIN (RDNA ORIGIN)(HUMAN INSULIN (RDNA ORIGIN) UNKNOWN FORMUL [Suspect]
     Dosage: EACH EVENING
     Dates: start: 19760101

REACTIONS (1)
  - BLOOD GLUCOSE INCREASED [None]
